FAERS Safety Report 7451944-8 (Version None)
Quarter: 2011Q2

REPORT INFORMATION
  Report Type: 
  Country: None (occurrence: None)
  Receive Date: 20110502
  Receipt Date: 20110328
  Transmission Date: 20111010
  Serious: Yes (Other)
  Sender: FDA-Public Use
  Company Number: PHHY2011BR27186

PATIENT
  Sex: Female

DRUGS (2)
  1. RANITIDINE [Suspect]
     Dosage: UNK UKN, UNK
     Route: 048
  2. OMEPRAZOLE [Suspect]
     Dosage: UNK UKN, UNK
     Route: 048

REACTIONS (2)
  - HYPOAESTHESIA FACIAL [None]
  - DIABETES MELLITUS [None]
